FAERS Safety Report 15796976 (Version 1)
Quarter: 2019Q1

REPORT INFORMATION
  Report Type: Spontaneous
  Country: US (occurrence: US)
  Receive Date: 20190108
  Receipt Date: 20190108
  Transmission Date: 20190417
  Serious: No
  Sender: FDA-Public Use
  Company Number: US-BAUSCH-BL-2017-001693

PATIENT
  Sex: Male
  Weight: 76.73 kg

DRUGS (3)
  1. XENAZINE [Suspect]
     Active Substance: TETRABENAZINE
     Route: 048
  2. TOPAMAX [Concomitant]
     Active Substance: TOPIRAMATE
     Indication: TOURETTE^S DISORDER
     Route: 048
  3. XENAZINE [Suspect]
     Active Substance: TETRABENAZINE
     Indication: TOURETTE^S DISORDER
     Dosage: ONE-HALF TABLET BY MOUTH
     Route: 048
     Dates: start: 201312

REACTIONS (5)
  - Off label use [Unknown]
  - Anxiety [Unknown]
  - Tic [Unknown]
  - Drug ineffective for unapproved indication [Unknown]
  - Product administration error [Unknown]
